FAERS Safety Report 8041144-5 (Version None)
Quarter: 2012Q1

REPORT INFORMATION
  Report Type: 
  Country: None (occurrence: None)
  Receive Date: 20120112
  Receipt Date: 20120104
  Transmission Date: 20120608
  Serious: Yes (Hospitalization, Other)
  Sender: FDA-Public Use
  Company Number: US-JNJFOC-20120101080

PATIENT
  Sex: Female
  Weight: 68.04 kg

DRUGS (9)
  1. FENTANYL-100 [Suspect]
     Indication: SPINAL FRACTURE
     Route: 062
     Dates: start: 20041201, end: 20050101
  2. FENTANYL-100 [Suspect]
     Route: 062
     Dates: start: 20041201, end: 20050101
  3. DURAGESIC-100 [Suspect]
     Route: 062
     Dates: start: 20070101
  4. DURAGESIC-100 [Suspect]
     Route: 062
     Dates: start: 19930101, end: 20040101
  5. FENTANYL-100 [Suspect]
     Indication: ARTHRITIS
     Route: 062
  6. FENTANYL-100 [Suspect]
     Route: 062
  7. DURAGESIC-100 [Suspect]
     Indication: ARTHRITIS
     Route: 062
     Dates: start: 20050101
  8. FENTANYL-100 [Suspect]
     Indication: NEPHROLITHIASIS
     Route: 062
  9. FENTANYL-100 [Suspect]
     Route: 062
     Dates: start: 20041201, end: 20050101

REACTIONS (12)
  - PAIN [None]
  - RASH [None]
  - DRUG INEFFECTIVE [None]
  - QUALITY OF LIFE DECREASED [None]
  - DYSSTASIA [None]
  - POOR QUALITY DRUG ADMINISTERED [None]
  - NAUSEA [None]
  - NEPHROLITHIASIS [None]
  - HYPERHIDROSIS [None]
  - PRODUCT QUALITY ISSUE [None]
  - ROTATOR CUFF SYNDROME [None]
  - WITHDRAWAL SYNDROME [None]
